FAERS Safety Report 8984179 (Version 1)
Quarter: 2012Q4

REPORT INFORMATION
  Report Type: 
  Country: US (occurrence: US)
  Receive Date: 20121226
  Receipt Date: 20121226
  Transmission Date: 20130627
  Serious: Yes (Other)
  Sender: FDA-Public Use
  Company Number: PHEH2012US025073

PATIENT
  Sex: Female

DRUGS (19)
  1. DIOVAN HCT [Suspect]
     Dosage: 1 DF (valsartan 160mg and hydrochlorotiazide 12.5mg) once daily
  2. LIPITOR [Suspect]
     Dosage: UNK UKN, UNK
  3. LIPITOR [Suspect]
     Dosage: UNK UKN, UNK
  4. WARFARIN [Suspect]
     Dosage: UNK UKN, UNK
  5. SULPHUR [Suspect]
     Dosage: UNK UKN, UNK
  6. PENICILLIN G POTASSIUM FOR INJECTION, USP [Suspect]
     Dosage: UNK UKN, UNK
  7. ATENOLOL [Concomitant]
     Dosage: 50 mg, QD
  8. REZYST [Concomitant]
     Dosage: UNK UKN, UNK
  9. OMEGA 3 [Concomitant]
  10. ACETYLSALICYLIC ACID [Concomitant]
     Dosage: UNK UKN, UNK
  11. MULTIVIT [Concomitant]
     Dosage: UNK UKN, UNK
  12. LISINOPRIL [Concomitant]
     Dosage: 40 mg once daily
  13. ZETIA [Concomitant]
     Dosage: 10 mg once daily
  14. CITALOPRAM [Concomitant]
     Dosage: 10 mg once daily
     Route: 048
  15. CITALOPRAM [Concomitant]
     Dosage: 10 mg, BID
     Route: 048
  16. ACETAMINOPHEN [Concomitant]
     Dosage: UNK UKN, UNK
  17. DIPHENHYDRAMINE [Concomitant]
     Dosage: UNK UKN, UNK
  18. FLECAINIDE [Concomitant]
     Dosage: 50 mg, BID
  19. TRAMADOL [Concomitant]
     Dosage: 50 mg, QD

REACTIONS (7)
  - Facial bones fracture [Unknown]
  - Blood disorder [Unknown]
  - Limb discomfort [Unknown]
  - Arthropathy [Unknown]
  - Dysstasia [Unknown]
  - Arthritis [Unknown]
  - Myalgia [Unknown]
